FAERS Safety Report 24129252 (Version 1)
Quarter: 2024Q3

REPORT INFORMATION
  Report Type: Spontaneous
  Country: CA (occurrence: CA)
  Receive Date: 20240723
  Receipt Date: 20240723
  Transmission Date: 20241017
  Serious: Yes (Other)
  Sender: MEDEXUS PHARMA
  Company Number: CA-MEDEXUS PHARMA, INC.-2024MED00326

PATIENT
  Age: 73 Year
  Sex: Female

DRUGS (1)
  1. METHOTREXATE [Suspect]
     Active Substance: METHOTREXATE
     Indication: Dermatitis atopic
     Dosage: UNK
     Route: 065

REACTIONS (4)
  - Cough [Recovering/Resolving]
  - Interstitial lung disease [Recovered/Resolved]
  - Hypersensitivity pneumonitis [Recovered/Resolved]
  - Drug ineffective for unapproved indication [Unknown]
